FAERS Safety Report 24621193 (Version 2)
Quarter: 2024Q4

REPORT INFORMATION
  Report Type: Report from Study
  Country: AU (occurrence: AU)
  Receive Date: 20241114
  Receipt Date: 20241204
  Transmission Date: 20250114
  Serious: No
  Sender: ROCHE
  Company Number: AU-ROCHE-10000132174

PATIENT
  Age: 62 Year
  Sex: Female

DRUGS (18)
  1. OCREVUS [Suspect]
     Active Substance: OCRELIZUMAB
     Indication: Multiple sclerosis
     Route: 042
  2. ZOLOFT [Concomitant]
     Active Substance: SERTRALINE HYDROCHLORIDE
  3. LORATADINE [Concomitant]
     Active Substance: LORATADINE
  4. ACETAMINOPHEN [Concomitant]
     Active Substance: ACETAMINOPHEN
     Dates: start: 20241129
  5. PRAMIPEXOLE DIHYDROCHLORIDE [Concomitant]
     Active Substance: PRAMIPEXOLE DIHYDROCHLORIDE
     Route: 048
  6. CEPHALEX [Concomitant]
     Route: 048
  7. Uramet [Concomitant]
     Route: 048
  8. TAMSULOSIN HYDROCHLORIDE [Concomitant]
     Active Substance: TAMSULOSIN HYDROCHLORIDE
  9. BACLOFEN [Concomitant]
     Active Substance: BACLOFEN
     Route: 048
  10. MIRABEGRON [Concomitant]
     Active Substance: MIRABEGRON
  11. CRESTOR [Concomitant]
     Active Substance: ROSUVASTATIN CALCIUM
  12. FERRO GRAD C [Concomitant]
  13. HIPREX [METHENAMINE HIPPURATE] [Concomitant]
     Route: 048
  14. NORMACOL PLUS [Concomitant]
  15. PREGABALIN [Concomitant]
     Active Substance: PREGABALIN
     Route: 048
  16. PREGABALIN [Concomitant]
     Active Substance: PREGABALIN
     Route: 048
  17. RABEPRAZOLE SODIUM [Concomitant]
     Active Substance: RABEPRAZOLE SODIUM
  18. APX AMITRIPTYLINE [Concomitant]

REACTIONS (3)
  - Respiratory syncytial virus test positive [Unknown]
  - Depression [Unknown]
  - Malaise [Unknown]

NARRATIVE: CASE EVENT DATE: 20241114
